FAERS Safety Report 9469685 (Version 2)
Quarter: 2013Q3

REPORT INFORMATION
  Report Type: Spontaneous
  Country: US (occurrence: US)
  Receive Date: 20130822
  Receipt Date: 20130918
  Transmission Date: 20140515
  Serious: Yes (Hospitalization)
  Sender: FDA-Public Use
  Company Number: PHHY2013US088352

PATIENT
  Age: 47 Year
  Sex: Female

DRUGS (5)
  1. CLOZAPINE [Suspect]
     Dosage: 100 MG, NIGHTLY
  2. METOCLOPRAMIDE [Suspect]
     Dosage: UKN
  3. CITALOPRAM [Suspect]
     Dosage: 10 MG, QD
  4. ONDANSETRON [Suspect]
  5. PROMETHAZINE [Concomitant]
     Indication: GASTROINTESTINAL DISORDER

REACTIONS (11)
  - General physical health deterioration [Unknown]
  - Coma [Recovered/Resolved]
  - Unresponsive to stimuli [Recovered/Resolved]
  - Serotonin syndrome [Unknown]
  - Clonus [Recovered/Resolved]
  - Hyperreflexia [Recovered/Resolved]
  - Mental status changes [Recovered/Resolved]
  - Agitation [Unknown]
  - Pain in extremity [Recovered/Resolved]
  - Muscle spasticity [Not Recovered/Not Resolved]
  - Salivary hypersecretion [Unknown]
